FAERS Safety Report 12410579 (Version 1)
Quarter: 2016Q2

REPORT INFORMATION
  Report Type: Spontaneous
  Country: US (occurrence: None)
  Receive Date: 20160526
  Receipt Date: 20160526
  Transmission Date: 20160815
  Serious: Yes (Hospitalization, Disabling)
  Sender: FDA-Public Use
  Company Number: None

PATIENT
  Age: 71 Year
  Sex: Female
  Weight: 74.84 kg

DRUGS (8)
  1. METROPROLOL [Concomitant]
     Active Substance: METOPROLOL
  2. LISINOPRIL. [Concomitant]
     Active Substance: LISINOPRIL
  3. GLIMIPIRIDE [Concomitant]
     Active Substance: GLIMEPIRIDE
  4. VITAMIN C [Concomitant]
     Active Substance: ASCORBIC ACID
  5. CIPRO [Suspect]
     Active Substance: CIPROFLOXACIN HYDROCHLORIDE
     Indication: PNEUMONIA
     Route: 048
     Dates: start: 20160208, end: 20160224
  6. LEVOTHYROXIN [Concomitant]
     Active Substance: LEVOTHYROXINE
  7. METFORMIN [Concomitant]
     Active Substance: METFORMIN HYDROCHLORIDE
  8. VITAMIN B12 [Concomitant]
     Active Substance: CYANOCOBALAMIN

REACTIONS (6)
  - Psychotic disorder [None]
  - Schizophrenia [None]
  - Abnormal behaviour [None]
  - Confusional state [None]
  - Paranoia [None]
  - Bipolar disorder [None]

NARRATIVE: CASE EVENT DATE: 20160211
